FAERS Safety Report 24952844 (Version 5)
Quarter: 2025Q1

REPORT INFORMATION
  Report Type: Report from Study
  Country: CA (occurrence: CA)
  Receive Date: 20250211
  Receipt Date: 20250224
  Transmission Date: 20250409
  Serious: No
  Sender: ROCHE
  Company Number: CA-ROCHE-10000202142

PATIENT
  Sex: Male

DRUGS (4)
  1. OCREVUS [Suspect]
     Active Substance: OCRELIZUMAB
     Indication: Relapsing-remitting multiple sclerosis
     Dosage: THEN 600MG EVERY 6 MONTHS
     Route: 042
     Dates: start: 20200121
  2. CEFAZOLIN [Concomitant]
     Active Substance: CEFAZOLIN
     Route: 042
  3. CEPHALAXIN [Concomitant]
     Active Substance: CEPHALEXIN ANHYDROUS
  4. VALTREX [Concomitant]
     Active Substance: VALACYCLOVIR HYDROCHLORIDE

REACTIONS (2)
  - Cellulitis [Recovering/Resolving]
  - Herpes zoster [Recovering/Resolving]
